FAERS Safety Report 5557098-7 (Version None)
Quarter: 2007Q4

REPORT INFORMATION
  Report Type: 
  Country: None (occurrence: None)
  Receive Date: 20071211
  Receipt Date: 20071211
  Transmission Date: 20080405
  Serious: Yes (Other)
  Sender: FDA-Public Use
  Company Number: None

PATIENT
  Sex: Male
  Weight: 72.5755 kg

DRUGS (1)
  1. CHANTIX [Suspect]
     Dosage: 1 MG TWICE DAILY PO
     Route: 048
     Dates: start: 20070918, end: 20071118

REACTIONS (4)
  - ALCOHOL USE [None]
  - ANXIETY [None]
  - PALPITATIONS [None]
  - PANIC ATTACK [None]
